FAERS Safety Report 7557042-7 (Version None)
Quarter: 2011Q2

REPORT INFORMATION
  Report Type: 
  Country: None (occurrence: None)
  Receive Date: 20110620
  Receipt Date: 20110609
  Transmission Date: 20111010
  Serious: Yes (Hospitalization)
  Sender: FDA-Public Use
  Company Number: DE-ROCHE-717718

PATIENT
  Sex: Male
  Weight: 56 kg

DRUGS (6)
  1. BEVACIZUMAB [Suspect]
     Indication: NON-SMALL CELL LUNG CANCER
     Dosage: FOR 4 CYCLES. THERAPY AND ROUTE AS REPORTED IN PROTOCOL. THERAPY TEMPORARILY INTERRUPTED.
     Route: 042
  2. PEMETREXED [Suspect]
     Indication: NON-SMALL CELL LUNG CANCER
     Dosage: FOR 4 CYCLES. THERAPY AND ROUTE AS REPORTED IN PROTOCOL. THERAPY TEMPORARILY INTERRUPTED.
     Route: 042
  3. CISPLATIN [Suspect]
     Indication: NON-SMALL CELL LUNG CANCER
     Dosage: FOR 4 CYCLES. THERAPY AND ROUTE AS REPORTED IN PROTOCOL.THERAPY TEMPORARILY INTERRUPTED.
     Route: 042
  4. BEVACIZUMAB [Suspect]
     Dosage: LAST DOSE PRIOR TO SAE WAS ON 24 JUN 2010
     Route: 042
     Dates: start: 20100521, end: 20100624
  5. PEMETREXED [Suspect]
     Dosage: LAST DOSE PRIOR TO SAE WAS ON 24 JUN 2010
     Route: 042
     Dates: start: 20100521, end: 20100624
  6. CISPLATIN [Suspect]
     Dosage: LAST DOSE PRIOR TO SAE WAS ON 24 JUN 2010
     Route: 042
     Dates: start: 20100521, end: 20100624

REACTIONS (2)
  - GENERAL PHYSICAL HEALTH DETERIORATION [None]
  - OESOPHAGEAL CANDIDIASIS [None]
